FAERS Safety Report 17894458 (Version 6)
Quarter: 2020Q3

REPORT INFORMATION
  Report Type: Report from Study
  Country: BR (occurrence: BR)
  Receive Date: 20200615
  Receipt Date: 20200721
  Transmission Date: 20201103
  Serious: Yes (Life-Threatening, Hospitalization)
  Sender: FDA-Public Use
  Company Number: BR-SA-2020SA151947

PATIENT

DRUGS (18)
  1. POTASSIUM PHOSPHATES [Concomitant]
     Active Substance: POTASSIUM PHOSPHATE, DIBASIC\POTASSIUM PHOSPHATE, MONOBASIC
     Dosage: 20 ML, PRN
     Route: 042
     Dates: start: 20200531, end: 20200531
  2. POLYMYXIN [Concomitant]
     Active Substance: POLYMYXIN
     Dosage: 2 AMPULE, BID
     Route: 042
     Dates: start: 20200608, end: 20200608
  3. MEROPENEM. [Concomitant]
     Active Substance: MEROPENEM
     Dosage: 2000 MG, TID
     Route: 042
     Dates: start: 20200605, end: 20200607
  4. MEROPENEM. [Concomitant]
     Active Substance: MEROPENEM
     Dosage: 1000 MG, TID
     Route: 042
     Dates: start: 20200611, end: 20200615
  5. VANCOMYCIN [Concomitant]
     Active Substance: VANCOMYCIN
     Dosage: 1000 MG, BID
     Route: 042
     Dates: start: 20200605, end: 20200607
  6. DIPIRONE [Concomitant]
     Active Substance: METAMIZOLE SODIUM
     Dosage: 2000 MG, QID
     Route: 042
     Dates: start: 20200614, end: 20200614
  7. DIPIRONE [Concomitant]
     Active Substance: METAMIZOLE SODIUM
     Indication: PRE-EXISTING DISEASE
     Dosage: 2000 MG, QID
     Route: 042
     Dates: start: 20200528, end: 20200605
  8. DIPIRONE [Concomitant]
     Active Substance: METAMIZOLE SODIUM
     Dosage: 2000 MG, QID
     Route: 042
     Dates: start: 20200610, end: 20200611
  9. POLYMYXIN [Concomitant]
     Active Substance: POLYMYXIN
     Dosage: 13.5 AMPULE, PRN
     Route: 042
     Dates: start: 20200605, end: 20200605
  10. VANCOMYCIN [Concomitant]
     Active Substance: VANCOMYCIN
     Dosage: 250 MG, QD
     Route: 042
     Dates: start: 20200608, end: 20200608
  11. AZITHROMYCIN ANHYDROUS. [Concomitant]
     Active Substance: AZITHROMYCIN ANHYDROUS
     Indication: PRE-EXISTING DISEASE
     Dosage: 500 MG, QD
     Route: 042
     Dates: start: 20200528
  12. POTASSIUM CHLORIDE. [Concomitant]
     Active Substance: POTASSIUM CHLORIDE
     Dosage: 600 MG, TID
     Route: 048
     Dates: start: 20200614, end: 20200620
  13. CLAVULIN [AMOXICILLIN SODIUM;CLAVULANATE POTASSIUM] [Concomitant]
     Active Substance: AMOXICILLIN\CLAVULANATE POTASSIUM
     Indication: PRE-EXISTING DISEASE
     Dosage: 2 G, TID
     Route: 042
     Dates: start: 20200528, end: 20200604
  14. SARILUMAB [Suspect]
     Active Substance: SARILUMAB
     Indication: COVID-19
     Dosage: INFUSION RATE OF 100 ML/H , 1 DF (1 BAG), 1X
     Route: 042
     Dates: start: 20200530, end: 20200530
  15. DIPIRONE [Concomitant]
     Active Substance: METAMIZOLE SODIUM
     Dosage: 2000 MG, PRN
     Route: 042
     Dates: start: 20200616, end: 20200616
  16. POLYMYXIN [Concomitant]
     Active Substance: POLYMYXIN
     Dosage: 4.5 AMPULE, BID
     Route: 042
     Dates: start: 20200606, end: 20200606
  17. POLYMYXIN [Concomitant]
     Active Substance: POLYMYXIN
     Dosage: 6.5 AMPULE, PRN
     Route: 042
     Dates: start: 20200607, end: 20200607
  18. MEROPENEM. [Concomitant]
     Active Substance: MEROPENEM
     Dosage: 1000 MG, BID
     Route: 042
     Dates: start: 20200608, end: 20200610

REACTIONS (2)
  - Cystitis klebsiella [Recovered/Resolved]
  - Systemic candida [Recovered/Resolved]

NARRATIVE: CASE EVENT DATE: 20200605
